FAERS Safety Report 8455956-7 (Version None)
Quarter: 2012Q2

REPORT INFORMATION
  Report Type: 
  Country: None (occurrence: None)
  Receive Date: 20120621
  Receipt Date: 20120611
  Transmission Date: 20120825
  Serious: Yes (Hospitalization)
  Sender: FDA-Public Use
  Company Number: US-ROCHE-1058031

PATIENT
  Age: 72 Year
  Sex: Female
  Weight: 71.6 kg

DRUGS (3)
  1. AVASTIN [Suspect]
     Indication: OVARIAN EPITHELIAL CANCER
     Dosage: START DATE OF COURSE ASSOCIATED WITH EXPEDITED REPORT : 06/MAR/2012
     Route: 042
     Dates: start: 20120110
  2. BLINDED EVEROLIMUS [Suspect]
     Indication: OVARIAN EPITHELIAL CANCER
     Route: 048
     Dates: start: 20120110
  3. BLINDED EVEROLIMUS [Suspect]
     Dosage: LEVEL ONE DOSE REDUCTION. LAST DOSE 26 APR 2012

REACTIONS (7)
  - ABDOMINAL PAIN [None]
  - ASCITES [None]
  - VOMITING [None]
  - HYPERTENSION [None]
  - HYPOXIA [None]
  - URINARY RETENTION [None]
  - NAUSEA [None]
